FAERS Safety Report 24229579 (Version 1)
Quarter: 2024Q3

REPORT INFORMATION
  Report Type: Spontaneous
  Country: US (occurrence: None)
  Receive Date: 20240819
  Receipt Date: 20240819
  Transmission Date: 20241016
  Serious: Yes (Hospitalization)
  Sender: Public
  Company Number: None

PATIENT
  Sex: Female

DRUGS (3)
  1. WINREVAIR [Suspect]
     Active Substance: SOTATERCEPT-CSRK
     Dates: start: 202405
  2. VELETRI SDV [Concomitant]
  3. PUMP CADD LEGACY [Concomitant]

REACTIONS (3)
  - Device malfunction [None]
  - Device use issue [None]
  - Joint abscess [None]
